FAERS Safety Report 7203759-3 (Version None)
Quarter: 2010Q4

REPORT INFORMATION
  Report Type: 
  Country: None (occurrence: None)
  Receive Date: 20101230
  Receipt Date: 20101221
  Transmission Date: 20110411
  Serious: Yes (Hospitalization)
  Sender: FDA-Public Use
  Company Number: JP-ASTRAZENECA-2010SE58668

PATIENT
  Age: 86 Year
  Sex: Female
  Weight: 42 kg

DRUGS (10)
  1. CRESTOR [Interacting]
     Indication: DYSLIPIDAEMIA
     Route: 048
     Dates: start: 20101102, end: 20101115
  2. ARICEPT [Interacting]
     Indication: DEMENTIA
     Route: 048
     Dates: start: 20101029, end: 20101104
  3. ARICEPT [Interacting]
     Route: 048
     Dates: start: 20101105, end: 20101108
  4. MAGLAX [Interacting]
     Indication: CONSTIPATION
     Route: 048
     Dates: start: 20101102, end: 20101117
  5. MAGLAX [Interacting]
     Route: 048
     Dates: start: 20101117, end: 20101121
  6. CALONAL [Interacting]
     Route: 048
  7. CYMBALTA [Suspect]
     Indication: DEPRESSION
     Route: 048
     Dates: start: 20100825, end: 20101122
  8. LENDORMIN [Concomitant]
     Indication: INSOMNIA
     Route: 048
     Dates: start: 20101020
  9. LENDORMIN [Concomitant]
     Route: 048
     Dates: end: 20101106
  10. ROHYPNOL [Concomitant]
     Indication: INSOMNIA
     Route: 048
     Dates: end: 20101031

REACTIONS (2)
  - DELIRIUM [None]
  - DRUG INTERACTION [None]
